FAERS Safety Report 15710241 (Version 1)
Quarter: 2018Q4

REPORT INFORMATION
  Report Type: Report from Study
  Country: None (occurrence: GB)
  Receive Date: 20181211
  Receipt Date: 20181211
  Transmission Date: 20190205
  Serious: Yes (Death, Hospitalization, Other)
  Sender: FDA-Public Use
  Company Number: GB-ABBVIE-08P-167-0433517-00

PATIENT
  Age: 57 Year
  Sex: Female

DRUGS (4)
  1. METHOTREXATE. [Suspect]
     Active Substance: METHOTREXATE
     Indication: RHEUMATOID ARTHRITIS
     Dosage: FREQUENCY REPORTED AS 1
     Route: 065
     Dates: start: 200501, end: 200707
  2. FOLIC ACID. [Concomitant]
     Active Substance: FOLIC ACID
     Indication: PRODUCT USED FOR UNKNOWN INDICATION
     Dates: start: 20070131
  3. HUMIRA [Suspect]
     Active Substance: ADALIMUMAB
     Indication: RHEUMATOID ARTHRITIS
     Route: 058
     Dates: start: 20061215, end: 20070709
  4. TRAMADOL. [Concomitant]
     Active Substance: TRAMADOL
     Indication: PRODUCT USED FOR UNKNOWN INDICATION
     Dates: start: 20070131

REACTIONS (6)
  - Chemotherapy [Fatal]
  - Pulmonary embolism [Unknown]
  - Neutropenia [Fatal]
  - Lower respiratory tract infection [Unknown]
  - Non-Hodgkin^s lymphoma [Fatal]
  - Neutropenic sepsis [Fatal]

NARRATIVE: CASE EVENT DATE: 20070628
